FAERS Safety Report 21327232 (Version 2)
Quarter: 2022Q3

REPORT INFORMATION
  Report Type: Spontaneous
  Country: TW (occurrence: JP)
  Receive Date: 20220913
  Receipt Date: 20220922
  Transmission Date: 20221027
  Serious: Yes (Death)
  Sender: FDA-Public Use
  Company Number: TW-CHUGAI-2022035438

PATIENT
  Age: 49 Year
  Sex: Female

DRUGS (2)
  1. ACTEMRA [Suspect]
     Active Substance: TOCILIZUMAB
     Indication: Cytokine release syndrome
     Dosage: UNK, QD
     Route: 041
     Dates: start: 20220424, end: 20220427
  2. RUXOLITINIB [Concomitant]
     Active Substance: RUXOLITINIB
     Indication: Cytokine release syndrome
     Dosage: UNK, QD
     Route: 042
     Dates: start: 20220427

REACTIONS (1)
  - Immune effector cell-associated neurotoxicity syndrome [Fatal]

NARRATIVE: CASE EVENT DATE: 20220427
